FAERS Safety Report 8593740-4 (Version None)
Quarter: 2012Q3

REPORT INFORMATION
  Report Type: 
  Country: None (occurrence: None)
  Receive Date: 20120814
  Receipt Date: 20120724
  Transmission Date: 20120928
  Serious: Yes (Death, Other)
  Sender: FDA-Public Use
  Company Number: US-ACTELION-A-NJ2012-65754

PATIENT
  Age: 60 Year
  Sex: Female

DRUGS (2)
  1. TRACLEER [Suspect]
     Indication: PULMONARY ARTERIAL HYPERTENSION
     Dosage: UNK
     Route: 048
     Dates: end: 20120619
  2. PLAVIX [Concomitant]

REACTIONS (7)
  - DYSPNOEA [None]
  - COLON CANCER METASTATIC [None]
  - METASTASES TO CENTRAL NERVOUS SYSTEM [None]
  - DRUG DOSE OMISSION [None]
  - ASTHENIA [None]
  - SMALL CELL LUNG CANCER EXTENSIVE STAGE [None]
  - METASTASES TO LIVER [None]
